FAERS Safety Report 8358026-1 (Version None)
Quarter: 2012Q2

REPORT INFORMATION
  Report Type: 
  Country: None (occurrence: None)
  Receive Date: 20120514
  Receipt Date: 20120508
  Transmission Date: 20120825
  Serious: Yes (Other)
  Sender: FDA-Public Use
  Company Number: US-BAYER-2012-046480

PATIENT
  Age: 45 Year
  Sex: Male
  Weight: 86 kg

DRUGS (19)
  1. LOPRESSOR [Concomitant]
  2. PAVULON [Concomitant]
  3. NITROGLYCERIN [Concomitant]
  4. FENTANYL-100 [Concomitant]
     Dosage: 40 ML
  5. VERSED [Concomitant]
  6. HEPARIN [Concomitant]
  7. ANCEF [Concomitant]
  8. PROTAMINE SULFATE [Concomitant]
  9. MANNITOL [Concomitant]
  10. NORVASC [Concomitant]
  11. REGULAR INSULIN [Concomitant]
  12. ZANTAC [Concomitant]
  13. PHENYLEPHRINE HCL [Concomitant]
  14. TRASYLOL [Suspect]
     Indication: CORONARY ARTERY BYPASS
     Dosage: 1 ML TEST DOSE, 200 ML PUMP PRIME, 200 ML LOAD, FOLLOWED BY 50CC/HR
     Route: 042
     Dates: start: 20020802, end: 20020802
  15. RED BLOOD CELLS [Concomitant]
     Dosage: 4 U, UNK
     Route: 042
     Dates: start: 20020802
  16. PLATELETS [Concomitant]
     Dosage: 12 U, UNK
     Route: 042
  17. ASPIRIN [Concomitant]
  18. PLASMA [Concomitant]
     Dosage: 2 U, UNK
     Route: 042
  19. EPINEPHRINE [Concomitant]

REACTIONS (2)
  - HEMIPARESIS [None]
  - CEREBROVASCULAR ACCIDENT [None]
